FAERS Safety Report 7443069-2 (Version None)
Quarter: 2011Q2

REPORT INFORMATION
  Report Type: 
  Country: None (occurrence: None)
  Receive Date: 20110428
  Receipt Date: 20110419
  Transmission Date: 20111010
  Serious: Yes (Hospitalization, Other)
  Sender: FDA-Public Use
  Company Number: US-ASTRAZENECA-2011SE22552

PATIENT
  Age: 52 Year
  Sex: Male

DRUGS (3)
  1. NEXIUM [Suspect]
     Route: 048
  2. PREVACID [Concomitant]
  3. PRILOSEC OTC [Concomitant]

REACTIONS (2)
  - DRUG DOSE OMISSION [None]
  - DISEASE RECURRENCE [None]
